FAERS Safety Report 17362767 (Version 3)
Quarter: 2020Q2

REPORT INFORMATION
  Report Type: Spontaneous
  Country: US (occurrence: US)
  Receive Date: 20200203
  Receipt Date: 20200625
  Transmission Date: 20200713
  Serious: Yes (Death, Hospitalization, Other)
  Sender: FDA-Public Use
  Company Number: US-009507513-2001USA009787

PATIENT
  Sex: Male

DRUGS (2)
  1. PACLITAXEL ALBUMIN [Suspect]
     Active Substance: PACLITAXEL
     Indication: METASTATIC SQUAMOUS CELL CARCINOMA
  2. CARBOPLATIN. [Suspect]
     Active Substance: CARBOPLATIN
     Indication: METASTATIC SQUAMOUS CELL CARCINOMA

REACTIONS (8)
  - Malignant neoplasm progression [Unknown]
  - Dyspnoea [Unknown]
  - Death [Fatal]
  - Productive cough [Unknown]
  - Aspiration [Unknown]
  - Respiratory disorder [Unknown]
  - Pneumonia [Unknown]
  - Choking [Unknown]

NARRATIVE: CASE EVENT DATE: 202001
